FAERS Safety Report 10048119 (Version 1)
Quarter: 2014Q1

REPORT INFORMATION
  Report Type: Spontaneous
  Country: US (occurrence: None)
  Receive Date: 20140306
  Receipt Date: 20140306
  Transmission Date: 20141002
  Serious: Yes (Other)
  Sender: FDA-Public Use
  Company Number: 163-21880-13054221

PATIENT
  Age: 72 Year
  Sex: Male
  Weight: 99.8 kg

DRUGS (1)
  1. REVLIMID [Suspect]
     Indication: PLASMA CELL MYELOMA
     Dosage: 5 MG, 21 IN 28 D, PO  04/26/2012 - ONGOING THERAPY
     Route: 048
     Dates: start: 20120426

REACTIONS (5)
  - Thrombosis [None]
  - Bronchitis [None]
  - Diarrhoea [None]
  - Constipation [None]
  - Platelet count decreased [None]
